FAERS Safety Report 8819241 (Version 2)
Quarter: 2012Q4

REPORT INFORMATION
  Report Type: 
  Country: FR (occurrence: FR)
  Receive Date: 20121001
  Receipt Date: 20121107
  Transmission Date: 20130627
  Serious: Yes (Other)
  Sender: FDA-Public Use
  Company Number: FR-JNJFOC-20120911072

PATIENT
  Age: 40 Year
  Sex: Female
  Weight: 43 kg

DRUGS (6)
  1. REMICADE [Suspect]
     Indication: CROHN^S DISEASE
     Route: 042
     Dates: start: 20120809
  2. REMICADE [Suspect]
     Indication: CROHN^S DISEASE
     Route: 042
     Dates: start: 20120914, end: 20120914
  3. ENTOCORT [Concomitant]
     Route: 048
  4. DAFALGAN [Concomitant]
     Route: 048
  5. TOPALGIC [Concomitant]
     Route: 048
  6. HYDROCORTISONE [Concomitant]
     Route: 042

REACTIONS (2)
  - Infusion related reaction [Recovered/Resolved]
  - Asthma [Unknown]
